FAERS Safety Report 4832991-9 (Version None)
Quarter: 2005Q4

REPORT INFORMATION
  Report Type: 
  Country: None (occurrence: None)
  Receive Date: 20051121
  Receipt Date: 20050930
  Transmission Date: 20060501
  Serious: Yes (Death, Hospitalization, Other)
  Sender: FDA-Public Use
  Company Number: US-MERCK-0510USA00719

PATIENT
  Age: 80 Year
  Sex: Female
  Weight: 86 kg

DRUGS (8)
  1. ATARAX [Concomitant]
     Indication: MONARTHRITIS
     Route: 048
  2. VIOXX [Suspect]
     Indication: MONARTHRITIS
     Route: 048
     Dates: start: 19990822
  3. LIBRIUM [Concomitant]
     Route: 065
  4. MILK OF MAGNESIA TAB [Concomitant]
     Route: 065
  5. MYLANTA + MYLANTA DS [Concomitant]
     Route: 065
  6. PLAVIX [Concomitant]
     Route: 065
  7. PRILOSEC [Concomitant]
     Route: 065
  8. TYLENOL (CAPLET) [Concomitant]
     Route: 065

REACTIONS (4)
  - CEREBROVASCULAR ACCIDENT [None]
  - DEATH [None]
  - DIZZINESS [None]
  - VOMITING [None]
